FAERS Safety Report 8432642-0 (Version None)
Quarter: 2012Q2

REPORT INFORMATION
  Report Type: 
  Country: None (occurrence: None)
  Receive Date: 20120613
  Receipt Date: 20120604
  Transmission Date: 20120825
  Serious: Yes (Death, Life-Threatening, Hospitalization)
  Sender: FDA-Public Use
  Company Number: NL-JNJFOC-20120521394

PATIENT
  Sex: Female
  Weight: 104 kg

DRUGS (22)
  1. OXAZEPAM [Concomitant]
  2. MIRTAZAPINE [Concomitant]
  3. MORPHINE [Concomitant]
  4. NITRAZEPAM [Concomitant]
  5. SUMATRIPTAN SUCCINATE [Concomitant]
  6. DEPAKENE [Concomitant]
  7. XARELTO [Suspect]
     Indication: KNEE ARTHROPLASTY
     Route: 065
     Dates: start: 20120522, end: 20120524
  8. NOZINAN [Concomitant]
  9. ALBUTEROL SULFATE AND IPRATROPIUM BROMIDE [Concomitant]
  10. PANTOPRAZOLE [Concomitant]
  11. LEVOTHYROXINE SODIUM [Concomitant]
  12. MICROLAX (SODIUM CITRATE, SODIUM LAURYL SULFOACETATE) [Concomitant]
  13. PRUNASINE [Concomitant]
  14. XARELTO [Suspect]
     Indication: THROMBOSIS PROPHYLAXIS
     Route: 065
     Dates: start: 20120522, end: 20120524
  15. PROMETHAZINE [Concomitant]
  16. METFORMIN HCL [Concomitant]
  17. GAVISCON (ANTACID) [Concomitant]
     Route: 048
  18. METOCLOPRAMIDE [Concomitant]
  19. ACETAMINOPHEN [Concomitant]
  20. SEROQUEL [Concomitant]
  21. LITHIUM [Concomitant]
  22. IMIPRAMINE [Concomitant]

REACTIONS (1)
  - PULMONARY EMBOLISM [None]
